FAERS Safety Report 23396123 (Version 1)
Quarter: 2024Q1

REPORT INFORMATION
  Report Type: Spontaneous
  Country: FR (occurrence: FR)
  Receive Date: 20240112
  Receipt Date: 20240112
  Transmission Date: 20240410
  Serious: Yes (Other)
  Sender: FDA-Public Use
  Company Number: FR-AFSSAPS-PA2023002471

PATIENT
  Age: 38 Year
  Sex: Male
  Weight: 75 kg

DRUGS (1)
  1. FINASTERIDE [Suspect]
     Active Substance: FINASTERIDE
     Indication: Androgenetic alopecia
     Dosage: 1 MILLIGRAM, ONCE A DAY (1 COMPRIM? /JOUR)
     Route: 048
     Dates: start: 20140620, end: 20161031

REACTIONS (3)
  - Libido decreased [Not Recovered/Not Resolved]
  - Penis disorder [Not Recovered/Not Resolved]
  - Semen liquefaction [Not Recovered/Not Resolved]

NARRATIVE: CASE EVENT DATE: 20150620
